FAERS Safety Report 7810219-5 (Version None)
Quarter: 2011Q4

REPORT INFORMATION
  Report Type: 
  Country: None (occurrence: None)
  Receive Date: 20111012
  Receipt Date: 20110928
  Transmission Date: 20120403
  Serious: Yes (Other)
  Sender: FDA-Public Use
  Company Number: GB-ROCHE-1000406

PATIENT
  Age: 69 Year
  Sex: Female

DRUGS (3)
  1. LAPATINIB [Suspect]
     Indication: BREAST CANCER METASTATIC
     Route: 048
  2. CAPECITABINE [Suspect]
     Indication: BREAST CANCER METASTATIC
     Route: 065
  3. PYRIDOXINE HCL [Concomitant]

REACTIONS (4)
  - BLOOD BILIRUBIN INCREASED [None]
  - BLOOD ALKALINE PHOSPHATASE DECREASED [None]
  - ALANINE AMINOTRANSFERASE INCREASED [None]
  - HEPATOTOXICITY [None]
